FAERS Safety Report 5758874-8 (Version None)
Quarter: 2008Q2

REPORT INFORMATION
  Report Type: 
  Country: None (occurrence: None)
  Receive Date: 20080604
  Receipt Date: 20080530
  Transmission Date: 20081010
  Serious: Yes (Other)
  Sender: FDA-Public Use
  Company Number: BE-WYE-G01611508

PATIENT

DRUGS (1)
  1. TYGACIL [Suspect]

REACTIONS (2)
  - DRUG RESISTANCE [None]
  - ESCHERICHIA INFECTION [None]
